FAERS Safety Report 6999911-2 (Version None)
Quarter: 2010Q3

REPORT INFORMATION
  Report Type: 
  Country: None (occurrence: None)
  Receive Date: 20100920
  Receipt Date: 20090825
  Transmission Date: 20110219
  Serious: Yes (Hospitalization)
  Sender: FDA-Public Use
  Company Number: US-ASTRAZENECA-2009SE06887

PATIENT
  Age: 18 Year
  Sex: Male

DRUGS (6)
  1. SEROQUEL [Suspect]
     Route: 048
     Dates: start: 20070101
  2. DEPAKOTE [Concomitant]
  3. LAMICTAL [Concomitant]
  4. STRATTERA [Concomitant]
  5. ARTANE [Concomitant]
  6. ATIVAN [Concomitant]

REACTIONS (1)
  - STUPOR [None]
